FAERS Safety Report 6610838-8 (Version None)
Quarter: 2010Q1

REPORT INFORMATION
  Report Type: 
  Country: None (occurrence: None)
  Receive Date: 20100219
  Receipt Date: 20100204
  Transmission Date: 20100710
  Serious: Yes (Hospitalization)
  Sender: FDA-Public Use
  Company Number: JP-1180840

PATIENT
  Age: 78 Year
  Sex: Male

DRUGS (3)
  1. TRAVATAN Z [Suspect]
     Indication: OPEN ANGLE GLAUCOMA
     Dosage: 1 GTT QD SU
     Route: 058
     Dates: start: 20090216
  2. AZOPT (BBRINZOLAMIDE) [Concomitant]
  3. COBALUM (CYANOCOBALAMIN) [Concomitant]

REACTIONS (1)
  - RETINAL HAEMORRHAGE [None]
